FAERS Safety Report 5775060-6 (Version None)
Quarter: 2008Q2

REPORT INFORMATION
  Report Type: 
  Country: None (occurrence: None)
  Receive Date: 20080616
  Receipt Date: 20080616
  Transmission Date: 20081010
  Serious: Yes (Other)
  Sender: FDA-Public Use
  Company Number: None

PATIENT
  Age: 57 Year
  Sex: Female
  Weight: 77.1115 kg

DRUGS (3)
  1. TAMOXIFEN [Suspect]
     Dosage: 1  1X DAY PO
     Route: 048
     Dates: start: 20060602, end: 20070909
  2. RAMOXIFEN [Concomitant]
  3. EVISTA [Concomitant]

REACTIONS (11)
  - CONTUSION [None]
  - DEMENTIA ALZHEIMER'S TYPE [None]
  - DIZZINESS [None]
  - FALL [None]
  - FATIGUE [None]
  - GINGIVAL BLEEDING [None]
  - HEADACHE [None]
  - MEMORY IMPAIRMENT [None]
  - MOUTH HAEMORRHAGE [None]
  - PAIN [None]
  - VISUAL DISTURBANCE [None]
